FAERS Safety Report 21258179 (Version 1)
Quarter: 2022Q3

REPORT INFORMATION
  Report Type: Spontaneous
  Country: US (occurrence: None)
  Receive Date: 20220825
  Receipt Date: 20220825
  Transmission Date: 20221027
  Serious: No
  Sender: FDA-Public Use
  Company Number: None

PATIENT
  Age: 52 Year
  Sex: Female

DRUGS (1)
  1. DIMETHYL FUMARATE [Suspect]
     Active Substance: DIMETHYL FUMARATE
     Indication: Multiple sclerosis
     Dosage: FREQUENCY : TWICE A DAY;?
     Route: 048
     Dates: start: 20220824

REACTIONS (14)
  - Nonspecific reaction [None]
  - Flushing [None]
  - Burning sensation [None]
  - Pruritus [None]
  - Erythema [None]
  - Erythema [None]
  - Erythema [None]
  - Erythema [None]
  - Rash [None]
  - Rash [None]
  - Rash [None]
  - Rash [None]
  - Oral discomfort [None]
  - Therapy cessation [None]

NARRATIVE: CASE EVENT DATE: 20220824
